FAERS Safety Report 20840637 (Version 1)
Quarter: 2022Q2

REPORT INFORMATION
  Report Type: Spontaneous
  Country: US (occurrence: US)
  Receive Date: 20220517
  Receipt Date: 20220517
  Transmission Date: 20220721
  Serious: No
  Sender: FDA-Public Use
  Company Number: US-PFIZER INC-2019559779

PATIENT
  Age: 77 Year
  Sex: Female

DRUGS (1)
  1. INSPRA [Suspect]
     Active Substance: EPLERENONE
     Dosage: 50 MG, 2X/DAY

REACTIONS (1)
  - COVID-19 [Unknown]
